FAERS Safety Report 9515196 (Version 1)
Quarter: 2013Q1

REPORT INFORMATION
  Report Type: Spontaneous
  Country: US (occurrence: None)
  Receive Date: 20130305
  Receipt Date: 20130305
  Transmission Date: 20140127
  Serious: Yes (Other)
  Sender: FDA-Public Use
  Company Number: 163-21880-12101811

PATIENT
  Age: 77 Year
  Sex: Male

DRUGS (3)
  1. REVLIMID [Suspect]
     Indication: PLASMA CELL MYELOMA
     Dosage: 25 MG, PO
     Route: 048
     Dates: start: 200909
  2. COUMADIN (WARFARIN SODIUM) (UNKNOWN) [Concomitant]
  3. FLU, SHOT (INFLUENZA VACCINE) (UNKNOWN) [Concomitant]

REACTIONS (2)
  - Pain [None]
  - Nasopharyngitis [None]
